FAERS Safety Report 7201927-8 (Version None)
Quarter: 2010Q4

REPORT INFORMATION
  Report Type: 
  Country: None (occurrence: None)
  Receive Date: 20101229
  Receipt Date: 20101223
  Transmission Date: 20110411
  Serious: Yes (Other)
  Sender: FDA-Public Use
  Company Number: BR-PFIZER INC-2010178403

PATIENT
  Age: 48 Year
  Sex: Female
  Weight: 56 kg

DRUGS (2)
  1. DEPO-PROVERA [Suspect]
     Indication: MENOPAUSE
     Dosage: 150 MG, EVERY 3 MONTHS
     Route: 030
     Dates: start: 20100101
  2. BUSCOPAN [Concomitant]
     Dosage: UNK

REACTIONS (1)
  - HAEMORRHAGE [None]
